FAERS Safety Report 24092883 (Version 1)
Quarter: 2024Q3

REPORT INFORMATION
  Report Type: Spontaneous
  Country: US (occurrence: US)
  Receive Date: 20240715
  Receipt Date: 20240715
  Transmission Date: 20241017
  Serious: Yes (Death, Other)
  Sender: DR REDDYS
  Company Number: US-DRL-USA-LIT/USA/24/0009990

PATIENT
  Age: 31 Year
  Sex: Male

DRUGS (25)
  1. FAMOTIDINE [Suspect]
     Active Substance: FAMOTIDINE
     Indication: Mast cell activation syndrome
  2. FAMOTIDINE [Suspect]
     Active Substance: FAMOTIDINE
     Indication: Mastocytic leukaemia
  3. CETIRIZINE [Suspect]
     Active Substance: CETIRIZINE HYDROCHLORIDE
     Indication: Mast cell activation syndrome
  4. CETIRIZINE [Suspect]
     Active Substance: CETIRIZINE HYDROCHLORIDE
     Indication: Mastocytic leukaemia
  5. IMATINIB [Suspect]
     Active Substance: IMATINIB
     Indication: Mastocytic leukaemia
  6. MIDOSTAURIN [Suspect]
     Active Substance: MIDOSTAURIN
     Indication: Mastocytic leukaemia
  7. MIDOSTAURIN [Suspect]
     Active Substance: MIDOSTAURIN
     Indication: Mast cell activation syndrome
  8. EPINEPHRINE [Concomitant]
     Active Substance: EPINEPHRINE
     Indication: Mast cell activation syndrome
     Route: 030
  9. EPINEPHRINE [Concomitant]
     Active Substance: EPINEPHRINE
     Indication: Mast cell activation syndrome
  10. DIPHENHYDRAMINE [Concomitant]
     Active Substance: DIPHENHYDRAMINE
     Indication: Mast cell activation syndrome
  11. DIPHENHYDRAMINE [Concomitant]
     Active Substance: DIPHENHYDRAMINE
     Indication: Mast cell activation syndrome
  12. DEXAMETHASONE [Concomitant]
     Active Substance: DEXAMETHASONE
     Indication: Mast cell activation syndrome
  13. DEXAMETHASONE [Concomitant]
     Active Substance: DEXAMETHASONE
     Indication: Mastocytic leukaemia
  14. AVAPRITINIB [Concomitant]
     Active Substance: AVAPRITINIB
     Indication: Mastocytic leukaemia
  15. AVAPRITINIB [Concomitant]
     Active Substance: AVAPRITINIB
     Indication: Mast cell activation syndrome
  16. CLADRIBINE [Concomitant]
     Active Substance: CLADRIBINE
     Indication: Mastocytic leukaemia
  17. CLADRIBINE [Concomitant]
     Active Substance: CLADRIBINE
     Indication: Mast cell activation syndrome
  18. FILGRASTIM [Concomitant]
     Active Substance: FILGRASTIM
     Indication: Mastocytic leukaemia
  19. FILGRASTIM [Concomitant]
     Active Substance: FILGRASTIM
     Indication: Mast cell activation syndrome
  20. CYTARABINE [Concomitant]
     Active Substance: CYTARABINE
     Indication: Mastocytic leukaemia
  21. CYTARABINE [Concomitant]
     Active Substance: CYTARABINE
     Indication: Mast cell activation syndrome
  22. MITOXANTRONE [Concomitant]
     Active Substance: MITOXANTRONE HYDROCHLORIDE
     Indication: Mastocytic leukaemia
  23. MITOXANTRONE [Concomitant]
     Active Substance: MITOXANTRONE HYDROCHLORIDE
     Indication: Mast cell activation syndrome
  24. OMALIZUMAB [Concomitant]
     Active Substance: OMALIZUMAB
     Indication: Mastocytic leukaemia
     Dosage: TWO 300 MG DOSES 48 HOURS APART
  25. OMALIZUMAB [Concomitant]
     Active Substance: OMALIZUMAB
     Indication: Mast cell activation syndrome

REACTIONS (1)
  - Drug ineffective for unapproved indication [Fatal]
